FAERS Safety Report 25671350 (Version 2)
Quarter: 2025Q3

REPORT INFORMATION
  Report Type: Spontaneous
  Country: CA (occurrence: CA)
  Receive Date: 20250812
  Receipt Date: 20250905
  Transmission Date: 20251021
  Serious: Yes (Hospitalization)
  Sender: AMERICAN REGENT
  Company Number: CA-AMERICAN REGENT INC-2025003121

PATIENT
  Age: 21 Year
  Sex: Female

DRUGS (1)
  1. VENOFER [Suspect]
     Active Substance: IRON SUCROSE
     Indication: Product used for unknown indication
     Route: 042
     Dates: start: 20250415, end: 20250415

REACTIONS (11)
  - Cyanosis [Recovering/Resolving]
  - Dyskinesia [Recovering/Resolving]
  - Pallor [Recovering/Resolving]
  - Heart rate decreased [Recovering/Resolving]
  - Back pain [Recovering/Resolving]
  - Blood pressure decreased [Recovering/Resolving]
  - Depressed level of consciousness [Recovering/Resolving]
  - Dizziness [Recovering/Resolving]
  - Dyspnoea [Recovering/Resolving]
  - Nausea [Recovering/Resolving]
  - Syncope [Recovered/Resolved]

NARRATIVE: CASE EVENT DATE: 20250415
